FAERS Safety Report 6210732-0 (Version None)
Quarter: 2009Q2

REPORT INFORMATION
  Report Type: 
  Country: None (occurrence: None)
  Receive Date: 20090601
  Receipt Date: 20090520
  Transmission Date: 20091009
  Serious: Yes (Other)
  Sender: FDA-Public Use
  Company Number: GB-PFIZER INC-2009216202

PATIENT
  Age: 19 Year

DRUGS (2)
  1. SULFASALAZINE [Suspect]
     Indication: RHEUMATOID ARTHRITIS
     Dosage: UNK
  2. KENALOG [Suspect]
     Indication: RHEUMATOID ARTHRITIS
     Dosage: 40 MG, UNK
     Route: 030
     Dates: start: 20090101

REACTIONS (4)
  - CUSHING'S SYNDROME [None]
  - HIRSUTISM [None]
  - SKIN STRIAE [None]
  - SWELLING FACE [None]
